FAERS Safety Report 9932056 (Version 1)
Quarter: 2014Q1

REPORT INFORMATION
  Report Type: Report from Study
  Country: US (occurrence: US)
  Receive Date: 20140228
  Receipt Date: 20140228
  Transmission Date: 20141002
  Serious: No
  Sender: FDA-Public Use
  Company Number: US-ABBVIE-14P-163-1194458-00

PATIENT
  Sex: Male

DRUGS (6)
  1. ANDROGEL [Suspect]
     Indication: PRODUCT USED FOR UNKNOWN INDICATION
     Dosage: THREE (5) GRAM PACKETS DAILY
     Route: 061
     Dates: start: 201111, end: 20131112
  2. ANDROGEL [Suspect]
     Dosage: TWO (5 GRAM) PACKET DAILY
     Route: 061
     Dates: start: 20131113, end: 20131126
  3. ANDROGEL [Suspect]
     Dosage: THREE (5 GRAM) PACKETS
     Route: 061
     Dates: start: 20131127
  4. CIALIS [Concomitant]
     Indication: PRODUCT USED FOR UNKNOWN INDICATION
  5. VITAMIN C [Concomitant]
     Indication: PRODUCT USED FOR UNKNOWN INDICATION
  6. DOCUSATE SODIUM [Concomitant]
     Indication: PRODUCT USED FOR UNKNOWN INDICATION

REACTIONS (2)
  - Off label use [Recovered/Resolved]
  - Blood testosterone decreased [Not Recovered/Not Resolved]
